FAERS Safety Report 8620207-7 (Version None)
Quarter: 2012Q3

REPORT INFORMATION
  Report Type: 
  Country: None (occurrence: None)
  Receive Date: 20120824
  Receipt Date: 20120817
  Transmission Date: 20120928
  Serious: Yes (Disabling, Other)
  Sender: FDA-Public Use
  Company Number: US-009507513-1202USA00025

PATIENT

DRUGS (2)
  1. FOSAMAX [Suspect]
     Indication: OSTEOPENIA
     Dosage: 70 MG, QW
     Route: 048
     Dates: start: 20050101, end: 20110601
  2. FOSAMAX [Suspect]
     Dosage: 70 MG, UNK
     Dates: start: 20081029, end: 20090804

REACTIONS (46)
  - ANKLE FRACTURE [None]
  - ANORECTAL DISORDER [None]
  - NAUSEA [None]
  - HYPERKERATOSIS [None]
  - NEUROMA [None]
  - HAEMANGIOMA [None]
  - GASTROOESOPHAGEAL REFLUX DISEASE [None]
  - CONSTIPATION [None]
  - CHILLS [None]
  - SEBORRHOEIC KERATOSIS [None]
  - RESTLESS LEGS SYNDROME [None]
  - BREAST DISORDER [None]
  - DEVICE FAILURE [None]
  - HAEMATOCHEZIA [None]
  - GASTROENTERITIS [None]
  - SCOLIOSIS [None]
  - CHEST PAIN [None]
  - ACUTE SINUSITIS [None]
  - LEFT ATRIAL DILATATION [None]
  - ABDOMINAL PAIN [None]
  - SLEEP DISORDER [None]
  - IRON DEFICIENCY ANAEMIA [None]
  - BRONCHITIS [None]
  - CATARACT [None]
  - CYST [None]
  - VITAMIN D DEFICIENCY [None]
  - URINARY TRACT INFECTION [None]
  - EAR PAIN [None]
  - DEPRESSION [None]
  - HYPERLIPIDAEMIA [None]
  - SPINAL FRACTURE [None]
  - BODY HEIGHT DECREASED [None]
  - PERIPHERAL VASCULAR DISORDER [None]
  - CAROTID BRUIT [None]
  - BONE DENSITY DECREASED [None]
  - HYPERTENSION [None]
  - COLITIS ISCHAEMIC [None]
  - ABDOMINAL PAIN LOWER [None]
  - HIATUS HERNIA [None]
  - GASTROINTESTINAL DISORDER [None]
  - GALLBLADDER DISORDER [None]
  - ARTHROPATHY [None]
  - HAEMORRHOIDS [None]
  - RIB FRACTURE [None]
  - EXTRASYSTOLES [None]
  - SPINAL COLUMN STENOSIS [None]
